FAERS Safety Report 16543415 (Version 1)
Quarter: 2019Q3

REPORT INFORMATION
  Report Type: Spontaneous
  Country: GB (occurrence: GB)
  Receive Date: 20190709
  Receipt Date: 20190709
  Transmission Date: 20191004
  Serious: Yes (Hospitalization, Other)
  Sender: FDA-Public Use
  Company Number: GB-SA-2019SA183873

PATIENT
  Age: 45 Year
  Sex: Male
  Weight: 101 kg

DRUGS (11)
  1. CLARITHROMYCIN. [Concomitant]
     Active Substance: CLARITHROMYCIN
     Dosage: 1 DF, BID
     Dates: start: 20190603, end: 20190610
  2. HYDROXYZINE [Concomitant]
     Active Substance: HYDROXYZINE HYDROCHLORIDE
     Dosage: 1 DF, HS
     Dates: start: 20170809, end: 20190319
  3. DUPIXENT [Suspect]
     Active Substance: DUPILUMAB
     Dosage: 300 MG/2ML
     Dates: start: 20190614
  4. QVAR [Concomitant]
     Active Substance: BECLOMETHASONE DIPROPIONATE
     Dosage: 2 DF, QD
     Dates: start: 20181024
  5. PROTOPIC [Concomitant]
     Active Substance: TACROLIMUS
     Dosage: APPLY EVERY DAY FOR 7 DAYS, THEN EVERY OTHER DAY
     Dates: start: 20180523
  6. SALBUTAMOL [Concomitant]
     Active Substance: ALBUTEROL
     Dosage: UNK, PRN
     Dates: start: 20181024
  7. OLOPATADINE. [Concomitant]
     Active Substance: OLOPATADINE
     Dosage: 2 GTT DROPS, QD
     Dates: start: 20190603
  8. DERMOL [BENZALKONIUM CHLORIDE;CHLORHEXIDINE HYDROCHLORIDE;ISOPROPYL MY [Concomitant]
     Dosage: APPLY TO THE SKIN OR USE AS A SOAP SUBSTITUTE
     Dates: start: 20180319, end: 20190319
  9. MOMETASONE [Concomitant]
     Active Substance: MOMETASONE
     Dosage: AS DIRECTED
     Dates: start: 20180523
  10. EMULSIFYING [EMULSIFYING WAX;PARAFFIN, LIQUID;WHITE SOFT PARAFFIN] [Concomitant]
     Dosage: UNK UNK, PRN, APPLY
     Dates: start: 20180319, end: 20190319
  11. LORATADINE. [Concomitant]
     Active Substance: LORATADINE
     Dosage: 1 DF, QD
     Dates: start: 20180523, end: 20190319

REACTIONS (6)
  - Secretion discharge [Unknown]
  - Muscle twitching [Unknown]
  - Bundle branch block left [Not Recovered/Not Resolved]
  - Syncope [Unknown]
  - Left ventricular dysfunction [Not Recovered/Not Resolved]
  - Eye movement disorder [Unknown]

NARRATIVE: CASE EVENT DATE: 20190614
